FAERS Safety Report 8503395-2 (Version None)
Quarter: 2012Q3

REPORT INFORMATION
  Report Type: 
  Country: None (occurrence: None)
  Receive Date: 20120711
  Receipt Date: 20120707
  Transmission Date: 20120928
  Serious: No
  Sender: FDA-Public Use
  Company Number: US-PFIZER INC-2012163758

PATIENT

DRUGS (1)
  1. EPIPEN [Suspect]
     Dosage: UNK

REACTIONS (1)
  - PAIN [None]
